FAERS Safety Report 9615896 (Version 1)
Quarter: 2013Q4

REPORT INFORMATION
  Report Type: Spontaneous
  Country: US (occurrence: None)
  Receive Date: 20131010
  Receipt Date: 20131010
  Transmission Date: 20140711
  Serious: Yes (Hospitalization)
  Sender: FDA-Public Use
  Company Number: None

PATIENT
  Age: 33 Year
  Sex: Female
  Weight: 65.77 kg

DRUGS (1)
  1. JUNEL 1/20 [Suspect]
     Indication: CONTRACEPTION
     Dosage: 1 PILL
     Route: 048

REACTIONS (1)
  - Peripheral artery thrombosis [None]
